FAERS Safety Report 17236670 (Version 2)
Quarter: 2020Q1

REPORT INFORMATION
  Report Type: Report from Study
  Country: US (occurrence: US)
  Receive Date: 20200106
  Receipt Date: 20200214
  Transmission Date: 20200409
  Serious: Yes (Hospitalization, Other)
  Sender: FDA-Public Use
  Company Number: US-TAKEDA-2019TUS037822

PATIENT
  Sex: Male
  Weight: 77.1 kg

DRUGS (3)
  1. PONATINIB [Suspect]
     Active Substance: PONATINIB
     Indication: ACUTE LYMPHOCYTIC LEUKAEMIA RECURRENT
     Dosage: 15 MILLIGRAM, QD
     Route: 048
     Dates: start: 20181207, end: 20191030
  2. PONATINIB [Suspect]
     Active Substance: PONATINIB
     Dosage: 30 MILLIGRAM, QD
     Route: 048
  3. BLINATUMOMAB [Concomitant]
     Active Substance: BLINATUMOMAB
     Dosage: UNK

REACTIONS (7)
  - Acute lymphocytic leukaemia [Unknown]
  - Mental disorder [Unknown]
  - Influenza [Unknown]
  - Pathogen resistance [Unknown]
  - Inability to afford medication [Unknown]
  - Pneumonia [Unknown]
  - Therapy cessation [Unknown]
